FAERS Safety Report 5149077-9 (Version None)
Quarter: 2006Q4

REPORT INFORMATION
  Report Type: 
  Country: None (occurrence: None)
  Receive Date: 20061113
  Receipt Date: 20061020
  Transmission Date: 20070319
  Serious: Yes (Hospitalization)
  Sender: FDA-Public Use
  Company Number: US-AMGEN-STX197735

PATIENT
  Sex: Male

DRUGS (2)
  1. ENBREL [Suspect]
     Indication: PSORIATIC ARTHROPATHY
     Route: 058
     Dates: start: 20060613
  2. METHOTREXATE [Concomitant]
     Dates: start: 20030101

REACTIONS (2)
  - INJECTION SITE BRUISING [None]
  - NERVE COMPRESSION [None]
